FAERS Safety Report 6295667-X (Version None)
Quarter: 2009Q3

REPORT INFORMATION
  Report Type: 
  Country: None (occurrence: None)
  Receive Date: 20090804
  Receipt Date: 20090522
  Transmission Date: 20100115
  Serious: Yes (Other)
  Sender: FDA-Public Use
  Company Number: US-BAYER-200921751NA

PATIENT
  Age: 23 Year
  Sex: Female
  Weight: 70 kg

DRUGS (39)
  1. MAGNEVIST [Suspect]
     Indication: NUCLEAR MAGNETIC RESONANCE IMAGING BRAIN
  2. OPTIMARK [Suspect]
     Indication: NUCLEAR MAGNETIC RESONANCE IMAGING BRAIN
     Route: 042
     Dates: start: 20060228, end: 20060228
  3. OPTIMARK [Suspect]
     Route: 042
     Dates: start: 20060315, end: 20060315
  4. UNSPECIFIED GADOLINIUM CONTRAST [Suspect]
     Indication: NUCLEAR MAGNETIC RESONANCE IMAGING BRAIN
     Route: 042
     Dates: start: 20040629, end: 20040629
  5. UNSPECIFIED GADOLINIUM CONTRAST [Suspect]
     Route: 042
     Dates: start: 20040218, end: 20040218
  6. UNSPECIFIED GADOLINIUM CONTRAST [Suspect]
     Dates: start: 20040405, end: 20040405
  7. UNSPECIFIED GADOLINIUM CONTRAST [Suspect]
     Dates: start: 20040505, end: 20040505
  8. UNSPECIFIED GADOLINIUM CONTRAST [Suspect]
     Route: 042
     Dates: start: 20040212, end: 20040212
  9. CALCIUM SUPPLEMENT [Concomitant]
  10. CARDIZEM CD [Concomitant]
  11. LEVOTHYROXINE SODIUM [Concomitant]
  12. NEPHROCAP [Concomitant]
  13. PHENYTOIN [Concomitant]
  14. PREDNISONE TAB [Concomitant]
  15. COUMADIN [Concomitant]
  16. PREVACID [Concomitant]
  17. NEURONTIN [Concomitant]
  18. MEGESTROL ACETATE [Concomitant]
  19. PHOSLO [Concomitant]
  20. DARVOCET [Concomitant]
  21. FENTANYL CITRATE [Concomitant]
  22. HYDROMORPHONE HCL [Concomitant]
  23. ATROVENT [Concomitant]
  24. INSULIN [Concomitant]
  25. ALBUTEROL [Concomitant]
  26. VALPROIC ACID [Concomitant]
  27. FOLIC ACID [Concomitant]
  28. EPOGEN [Concomitant]
  29. POTASSIUM CHLORIDE [Concomitant]
  30. VASOTEC [Concomitant]
  31. AMOXICILLIN W/ CLAVULONIC ACID [Concomitant]
  32. MORPHINE SULFATE [Concomitant]
  33. ZOSYN [Concomitant]
  34. METRONIDAZOLE [Concomitant]
  35. LEVAQUIN [Concomitant]
  36. ARAVA [Concomitant]
  37. PLAQUENI [Concomitant]
  38. CYTOXAN [Concomitant]
  39. NORVASC [Concomitant]

REACTIONS (15)
  - DRY SKIN [None]
  - EXTREMITY CONTRACTURE [None]
  - HYPERKERATOSIS [None]
  - MOBILITY DECREASED [None]
  - NEPHROGENIC SYSTEMIC FIBROSIS [None]
  - OEDEMA [None]
  - PAIN [None]
  - PERIPHERAL ISCHAEMIA [None]
  - PERONEAL NERVE PALSY [None]
  - SKIN DEPIGMENTATION [None]
  - SKIN DISORDER [None]
  - SKIN HYPERPIGMENTATION [None]
  - SKIN TIGHTNESS [None]
  - SKIN WARM [None]
  - SUBCUTANEOUS NODULE [None]
